FAERS Safety Report 24247805 (Version 6)
Quarter: 2025Q4

REPORT INFORMATION
  Report Type: Spontaneous
  Country: CA (occurrence: CA)
  Receive Date: 20240826
  Receipt Date: 20251118
  Transmission Date: 20260117
  Serious: Yes (Congenital Anomaly, Other)
  Sender: NOVARTIS
  Company Number: CA-002147023-NVSC2024CA168989

PATIENT

DRUGS (237)
  1. COSENTYX [Suspect]
     Active Substance: SECUKINUMAB
     Indication: Foetal exposure during pregnancy
     Dosage: UNK (MATERNAL EXPOSURE DURING PREGNANCY) (TRANSPLACENTAL)
     Route: 064
  2. COSENTYX [Suspect]
     Active Substance: SECUKINUMAB
     Dosage: UNK (MATERNAL EXPOSURE DURING PREGNANCY) (TRANSPLACENTAL)
     Route: 064
  3. DICLOFENAC POTASSIUM [Suspect]
     Active Substance: DICLOFENAC POTASSIUM
     Indication: Foetal exposure during pregnancy
     Dosage: UNK (MATERNAL EXPOSURE DURING PREGNANCY) (TRANSPLACENTAL)
     Route: 064
  4. DICLOFENAC SODIUM [Suspect]
     Active Substance: DICLOFENAC SODIUM
     Indication: Foetal exposure during pregnancy
     Dosage: UNK (MATERNAL EXPOSURE DURING PREGNANCY: 50 MG) (TRANSPLACENTAL)
     Route: 064
  5. DICLOFENAC SODIUM [Suspect]
     Active Substance: DICLOFENAC SODIUM
     Dosage: UNK (MATERNAL EXPOSURE DURING PREGNANCY: 50 MG) (TRANSPLACENTAL)
     Route: 064
  6. VOLTAREN [Suspect]
     Active Substance: DICLOFENAC SODIUM
     Indication: Foetal exposure during pregnancy
     Dosage: UNK (MATERNAL EXPOSURE DURING PREGNANCY) (TRANSPLACENTAL)
     Route: 064
  7. VOLTAREN [Suspect]
     Active Substance: DICLOFENAC SODIUM
     Dosage: UNK (MATERNAL EXPOSURE DURING PREGNANCY: 50 MG) (TRANSPLACENTAL)
     Route: 064
  8. AIMOVIG [Suspect]
     Active Substance: ERENUMAB-AOOE
     Indication: Foetal exposure during pregnancy
     Dosage: UNK (SOLUTION) (MATERNAL EXPOSURE DURING PREGNANCY) (TRANSPLACENTAL)
     Route: 064
  9. ADALIMUMAB [Suspect]
     Active Substance: ADALIMUMAB
     Indication: Foetal exposure during pregnancy
     Dosage: UNK (MATERNAL EXPOSURE DURING PREGNANCY: 40 MG, Q2W) (TRANSPLACENTAL)
     Route: 064
  10. ADALIMUMAB [Suspect]
     Active Substance: ADALIMUMAB
     Dosage: UNK (MATERNAL EXPOSURE DURING PREGNANCY: UNK) (TRANSPLACENTAL)
     Route: 064
  11. ADALIMUMAB [Suspect]
     Active Substance: ADALIMUMAB
     Dosage: UNK (MATERNAL EXPOSURE DURING PREGNANCY: 40 MG) (TRANSPLACENTAL)
     Route: 065
  12. METFORMIN HYDROCHLORIDE [Suspect]
     Active Substance: METFORMIN HYDROCHLORIDE
     Indication: Foetal exposure during pregnancy
     Dosage: UNK (MATERNAL EXPOSURE DURING PREGNANCY CASE) (TRANSPLACENTAL USE)
     Route: 064
  13. ALENDRONIC ACID [Suspect]
     Active Substance: ALENDRONIC ACID
     Indication: Foetal exposure during pregnancy
     Dosage: UNK (MATERNAL EXPOSURE DURING PREGNANCY) (TRANSPLACENTAL)
     Route: 064
  14. ALENDRONIC ACID [Suspect]
     Active Substance: ALENDRONIC ACID
     Dosage: UNK (MATERNAL EXPOSURE DURING PREGNANCY) (TRANSPLACENTAL)
     Route: 064
  15. RITUXIMAB [Suspect]
     Active Substance: RITUXIMAB
     Indication: Foetal exposure during pregnancy
     Dosage: UNK (MATERNAL EXPOSURE DURING PREGNANCY: 2000 MG, QD) (TRANSPLACENTAL)
     Route: 065
  16. RITUXIMAB [Suspect]
     Active Substance: RITUXIMAB
     Dosage: UNK  (MATERNAL EXPOSURE DURING PREGNANCY) (TRANSPLACENTAL)
     Route: 064
  17. RITUXIMAB [Suspect]
     Active Substance: RITUXIMAB
     Dosage: UNK  (MATERNAL EXPOSURE DURING PREGNANCY) (TRANSPLACENTAL)
     Route: 064
  18. RITUXIMAB [Suspect]
     Active Substance: RITUXIMAB
     Dosage: UNK (MATERNAL EXPOSURE DURING PREGNANCY: 365 MG, QD) (TRANSPLACENTAL)
     Route: 064
  19. RITUXIMAB [Suspect]
     Active Substance: RITUXIMAB
     Dosage: UNK (MATERNAL EXPOSURE DURING PREGNANCY: 1000 MG QD) (TRANSPLACENTAL)
     Route: 064
  20. RITUXIMAB [Suspect]
     Active Substance: RITUXIMAB
     Dosage: UNK (MATERNAL EXPOSURE DURING PREGNANCY: UNK) (TRANSPLACENTAL)
     Route: 064
  21. RITUXIMAB [Suspect]
     Active Substance: RITUXIMAB
     Dosage: UNK  (MATERNAL EXPOSURE DURING PREGNANCY) (TRANSPLACENTAL)
     Route: 064
  22. MAGNESIUM CITRATE [Suspect]
     Active Substance: MAGNESIUM CITRATE
     Indication: Foetal exposure during pregnancy
     Dosage: UNK (MATERNAL EXPOSURE DURING PREGNANCY) (TRANSPLACENTAL)
     Route: 064
  23. MAGNESIUM CITRATE [Suspect]
     Active Substance: MAGNESIUM CITRATE
     Dosage: UNK (MATERNAL EXPOSURE DURING PREGNANCY: 1 DOSAGE FORM) (TRANSPLACENTAL)
     Route: 064
  24. LEFLUNOMIDE [Suspect]
     Active Substance: LEFLUNOMIDE
     Indication: Foetal exposure during pregnancy
     Dosage: UNK (NOT SPECIFIED) (MATERNAL EXPOSURE DURING PREGNANCY) (TRANSPLACENTAL)
     Route: 064
  25. LEFLUNOMIDE [Suspect]
     Active Substance: LEFLUNOMIDE
     Dosage: UNK (MATERNAL EXPOSURE DURING PREGNANCY: 20 MG) (TRANSPLACENTAL)
     Route: 064
  26. LEFLUNOMIDE [Suspect]
     Active Substance: LEFLUNOMIDE
     Dosage: UNK (MATERNAL EXPOSURE DURING PREGNANCY: 10 MG QD) (TRANSPLACENTAL)
     Route: 064
  27. DICLOFENAC [Suspect]
     Active Substance: DICLOFENAC
     Indication: Foetal exposure during pregnancy
     Dosage: UNK (MATERAL EXPOSURE DURING PREGNANCY) (TRANSPLACENTAL USE)
     Route: 064
  28. OXYCODONE [Suspect]
     Active Substance: OXYCODONE
     Indication: Foetal exposure during pregnancy
     Dosage: UNKUNK (MATERNAL EXPOSURE DURING PREGNANCY) (TRANSPLACENTAL)
     Route: 064
  29. CANDESARTAN [Suspect]
     Active Substance: CANDESARTAN
     Indication: Foetal exposure during pregnancy
     Dosage: UNK (MATERNAL EXPOSURE DURING PREGNANCY) (TRANSPLACENTAL)
     Route: 064
  30. METFORMIN\SITAGLIPTIN [Suspect]
     Active Substance: METFORMIN\SITAGLIPTIN
     Indication: Foetal exposure during pregnancy
     Dosage: UNK
     Route: 064
  31. CHOLECALCIFEROL [Suspect]
     Active Substance: CHOLECALCIFEROL
     Indication: Foetal exposure during pregnancy
     Dosage: UNK (NOT SPECIFIED) (MATERNAL EXPOSURE DURING PREGNANCY) (TRANSPLACENTAL)
     Route: 064
  32. DICLOFENAC SODIUM [Suspect]
     Active Substance: DICLOFENAC SODIUM
     Indication: Foetal exposure during pregnancy
     Dosage: UNK (MATERNAL EXPOSURE DURING PREGNANCY: UNK) (TRANSPLACENTAL)
     Route: 064
  33. FOSAMAX [Suspect]
     Active Substance: ALENDRONATE SODIUM
     Indication: Foetal exposure during pregnancy
     Dosage: UNK (MATERNAL EXPOSURE DURING PREGNANCY) (TRANSPLACENTAL)
     Route: 064
  34. FOSAMAX [Suspect]
     Active Substance: ALENDRONATE SODIUM
     Dosage: UNK (MATERNAL EXPOSURE DURING PREGNANCY: UNK) (TRANSPLACENTAL)
     Route: 064
  35. FOSAMAX [Suspect]
     Active Substance: ALENDRONATE SODIUM
     Dosage: UNK (MATERNAL EXPOSURE DURING PREGNANCY: UNK) (TRANSPLACENTAL)
     Route: 064
  36. FOSAMAX [Suspect]
     Active Substance: ALENDRONATE SODIUM
     Dosage: UNK (MATERNAL EXPOSURE DURING PREGNANCY: UNK) (TRANSPLACENTAL)
     Route: 064
  37. ALENDRONATE SODIUM [Suspect]
     Active Substance: ALENDRONATE SODIUM
     Indication: Foetal exposure during pregnancy
     Dosage: UNK (MATERNAL EXPOSURE DURING PREGNANCY) (TRANSPLACENTAL)
     Route: 064
  38. BOTULINUM TOXIN TYPE A [Suspect]
     Active Substance: BOTULINUM TOXIN TYPE A
     Indication: Foetal exposure during pregnancy
     Dosage: UNK (POWDER FOR SOLUTION) (MATERNAL EXPOSURE DURING PREGNANCY) (TRANSPLACENTAL)
     Route: 064
  39. BOTULINUM TOXIN TYPE A [Suspect]
     Active Substance: BOTULINUM TOXIN TYPE A
     Dosage: UNK (POWDER FOR SOLUTION) (MATERNAL EXPOSURE DURING PREGNANCY) (TRANSPLACENTAL)
     Route: 064
  40. HUMIRA [Suspect]
     Active Substance: ADALIMUMAB
     Indication: Foetal exposure during pregnancy
     Dosage: UNK (SOLUTION SUBCUTANEOUS) (MATERNAL EXPOSURE DURING PREGNANCY) (TRANSPLACENTAL)
     Route: 064
  41. HUMIRA [Suspect]
     Active Substance: ADALIMUMAB
     Dosage: UNK (MATERNAL EXPOSURE DURING PREGNANCY: 40 MG) (TRANSPLACENTAL)
     Route: 064
  42. HUMIRA [Suspect]
     Active Substance: ADALIMUMAB
     Dosage: UNK (MATERNAL EXPOSURE DURING PREGNANCY: UNK) (TRANSPLACENTAL)
     Route: 064
  43. HUMIRA [Suspect]
     Active Substance: ADALIMUMAB
     Dosage: UNK (MATERNAL EXPOSURE DURING PREGNANCY: UNK) (TRANSPLACENTAL)
     Route: 064
  44. ATOMOXETINE HYDROCHLORIDE [Suspect]
     Active Substance: ATOMOXETINE HYDROCHLORIDE
     Indication: Foetal exposure during pregnancy
     Dosage: UNK (MATERNAL EXPOSURE DURING PREGNANCY) (TRANSPLACENTAL)
     Route: 064
  45. ATOMOXETINE HYDROCHLORIDE [Suspect]
     Active Substance: ATOMOXETINE HYDROCHLORIDE
     Dosage: UNK (MATERNAL EXPOSURE DURING PREGNANCY: 1 DOSAGE FORM) (TRANSPLACENTAL)
     Route: 064
  46. ATOMOXETINE HYDROCHLORIDE [Suspect]
     Active Substance: ATOMOXETINE HYDROCHLORIDE
     Dosage: UNK (MATERNAL EXPOSURE DURING PREGNANCY: 1 DOSAGE FORM QD) (TRANSPLACENTAL)
     Route: 064
  47. ACETAMINOPHEN AND CODEINE [Suspect]
     Active Substance: ACETAMINOPHEN\CODEINE PHOSPHATE
     Indication: Foetal exposure during pregnancy
     Dosage: UNK (MATERNAL EXPOSURE DURING PREGNANCY) (TRANSPLACENTAL)
     Route: 064
  48. ACETAMINOPHEN\CODEINE PHOSPHATE [Suspect]
     Active Substance: ACETAMINOPHEN\CODEINE PHOSPHATE
     Indication: Foetal exposure during pregnancy
     Dosage: UNK (MATERNAL EXPOSURE DURING PREGNANCY) (TRANSPLACENTAL)
     Route: 064
  49. ACTEMRA [Suspect]
     Active Substance: TOCILIZUMAB
     Indication: Foetal exposure during pregnancy
     Dosage: UNK (MATERNAL EXPOSURE DURING PREGNANCY) (TRANSPLACENTAL)
     Route: 064
  50. ACTEMRA [Suspect]
     Active Substance: TOCILIZUMAB
     Dosage: UNK (MATERNAL EXPOSURE DURING PREGNANCY: 728 MG) (TRANSPLACENTAL)
     Route: 064
  51. ACTEMRA [Suspect]
     Active Substance: TOCILIZUMAB
     Dosage: UNK (MATERNAL EXPOSURE DURING PREGNANCY: 2912 MG) (TRANSPLACENTAL)
     Route: 064
  52. ACTEMRA [Suspect]
     Active Substance: TOCILIZUMAB
     Dosage: UNK (MATERNAL EXPOSURE DURING PREGNANCY: 8 MG/KG) (TRANSPLACENTAL)
     Route: 064
  53. ACTEMRA [Suspect]
     Active Substance: TOCILIZUMAB
     Dosage: UNK (MATERNAL EXPOSURE DURING PREGNANCY: UNK) (TRANSPLACENTAL)
     Route: 064
  54. ACTEMRA [Suspect]
     Active Substance: TOCILIZUMAB
     Dosage: UNK (MATERNAL EXPOSURE DURING PREGNANCY: 8 MG) (TRANSPLACENTAL)
     Route: 064
  55. ACTEMRA [Suspect]
     Active Substance: TOCILIZUMAB
     Dosage: UNK (MATERNAL EXPOSURE DURING PREGNANCY: 160 MG) (TRANSPLACENTAL)
     Route: 064
  56. ACTEMRA [Suspect]
     Active Substance: TOCILIZUMAB
     Dosage: UNK (MATERNAL EXPOSURE DURING PREGNANCY: 162 MG) (TRANSPLACENTAL)
     Route: 064
  57. ACTEMRA [Suspect]
     Active Substance: TOCILIZUMAB
     Dosage: UNK (MATERNAL EXPOSURE DURING PREGNANCY: 20 MG) (TRANSPLACENTAL)
     Route: 064
  58. ACTEMRA [Suspect]
     Active Substance: TOCILIZUMAB
     Dosage: UNK (MATERNAL EXPOSURE DURING PREGNANCY: UNK) (TRANSPLACENTAL)
     Route: 064
  59. LEFLUNOMIDE [Suspect]
     Active Substance: LEFLUNOMIDE
     Indication: Foetal exposure during pregnancy
     Dosage: UNK (MATERNAL EXPOSURE DURING PREGNANCY) (TRANSPLACENTAL)
     Route: 064
  60. LEFLUNOMIDE [Suspect]
     Active Substance: LEFLUNOMIDE
     Dosage: UNK (MATERNAL EXPOSURE DURING PREGNANCY: 10 MG QD) (TRANSPLACENTAL)
     Route: 064
  61. LEFLUNOMIDE [Suspect]
     Active Substance: LEFLUNOMIDE
     Dosage: UNK (MATERNAL EXPOSURE DURING PREGNANCY: 20 MG QD) (TRANSPLACENTAL)
     Route: 064
  62. LEFLUNOMIDE [Suspect]
     Active Substance: LEFLUNOMIDE
     Dosage: UNK (MATERNAL EXPOSURE DURING PREGNANCY: 40 MG) (TRANSPLACENTAL)
     Route: 064
  63. LEFLUNOMIDE [Suspect]
     Active Substance: LEFLUNOMIDE
     Dosage: UNK (MATERNAL EXPOSURE DURING PREGNANCY: 5 MG) (TRANSPLACENTAL)
     Route: 064
  64. LEFLUNOMIDE [Suspect]
     Active Substance: LEFLUNOMIDE
     Dosage: UNK (MATERNAL EXPOSURE DURING PREGNANCY: 1 MG) (TRANSPLACENTAL)
     Route: 064
  65. LEFLUNOMIDE [Suspect]
     Active Substance: LEFLUNOMIDE
     Dosage: UNK (MATERNAL EXPOSURE DURING PREGNANCY: 10 MG) (TRANSPLACENTAL)
     Route: 064
  66. LEFLUNOMIDE [Suspect]
     Active Substance: LEFLUNOMIDE
     Dosage: UNK (MATERNAL EXPOSURE DURING PREGNANCY: 20 MG, QD) (TRANSPLACENTAL)
     Route: 064
  67. LEFLUNOMIDE [Suspect]
     Active Substance: LEFLUNOMIDE
     Dosage: UNK (MATERNAL EXPOSURE DURING PREGNANCY: UNK) (TRANSPLACENTAL)
     Route: 064
  68. PREDNISONE [Suspect]
     Active Substance: PREDNISONE
     Indication: Foetal exposure during pregnancy
     Dosage: UNK (MATERNAL EXPOSURE DURING PREGNANCY) (TRANSPLACENTAL)
     Route: 064
  69. ARAVA [Suspect]
     Active Substance: LEFLUNOMIDE
     Indication: Foetal exposure during pregnancy
     Dosage: UNK (MATERNAL EXPOSURE DURING PREGNANCY) (TRANSPLACENTAL)
     Route: 064
  70. ARAVA [Suspect]
     Active Substance: LEFLUNOMIDE
     Dosage: UNK (MATERNAL EXPOSURE DURING PREGNANCY: 20 MG QD) (TRANSPLACENTAL)
     Route: 064
  71. MINOCYCLINE HYDROCHLORIDE [Suspect]
     Active Substance: MINOCYCLINE HYDROCHLORIDE
     Indication: Foetal exposure during pregnancy
     Dosage: UNK (MATERNAL EXPOSURE DURING PREGNANCY) (TRANSPLACENTAL)
     Route: 064
  72. AZATHIOPRINE SODIUM [Suspect]
     Active Substance: AZATHIOPRINE SODIUM
     Indication: Foetal exposure during pregnancy
     Dosage: UNK (MATERNAL EXPOSURE DURING PREGNANCY) (TRANSPLACENTAL)
     Route: 064
  73. AZATHIOPRINE SODIUM [Suspect]
     Active Substance: AZATHIOPRINE SODIUM
     Dosage: UNK (NOT SPECIFIED) (MATERNAL EXPOSURE DURING PREGNANCY) (TRANSPLACENTAL)
     Route: 064
  74. AZATHIOPRINE SODIUM [Suspect]
     Active Substance: AZATHIOPRINE SODIUM
     Dosage: UNK (MATERNAL EXPOSURE DURING PREGNANCY: UNK) (TRANSPLACENTAL)
     Route: 064
  75. BERINERT [Suspect]
     Active Substance: HUMAN C1-ESTERASE INHIBITOR
     Indication: Foetal exposure during pregnancy
     Dosage: UNK (MATERNAL EXPOSURE DURING PREGNANCY) (TRANSPLACENTAL)
     Route: 064
  76. BERINERT [Suspect]
     Active Substance: HUMAN C1-ESTERASE INHIBITOR
     Dosage: UNK (MATERNAL EXPOSURE DURING PREGNANCY) (TRANSPLACENTAL)
     Route: 064
  77. HYDROXYCHLOROQUINE SULFATE [Suspect]
     Active Substance: HYDROXYCHLOROQUINE SULFATE
     Indication: Foetal exposure during pregnancy
     Dosage: UNK (TABLETS, USP, MATERNAL EXPOSURE DURING PREGNANCY) (TRANSPLACENTAL)
     Route: 064
  78. ISOPROPYL ALCOHOL [Suspect]
     Active Substance: ISOPROPYL ALCOHOL
     Indication: Foetal exposure during pregnancy
     Dosage: UNK (LIQUID TOPICAL) (MATERNAL EXPOSURE DURING PREGNANCY) (TRANSPLACENTAL)
     Route: 064
  79. ISOPROPYL ALCOHOL [Suspect]
     Active Substance: ISOPROPYL ALCOHOL
     Dosage: UNK (MATERNAL EXPOSURE DURING PREGNANCY: 50 MG) (TRANSPLACENTAL)
     Route: 064
  80. ISOPROPYL ALCOHOL [Suspect]
     Active Substance: ISOPROPYL ALCOHOL
     Dosage: UNK (MATERNAL EXPOSURE DURING PREGNANCY: 50 MG) (TRANSPLACENTAL)
     Route: 064
  81. ISOPROPYL ALCOHOL [Suspect]
     Active Substance: ISOPROPYL ALCOHOL
     Dosage: UNK (MATERNAL EXPOSURE DURING PREGNANCY: 25 MG) (TRANSPLACENTAL)
     Route: 064
  82. BUTRANS [Suspect]
     Active Substance: BUPRENORPHINE
     Indication: Foetal exposure during pregnancy
     Dosage: UNK (MATERNAL EXPOSURE DURING PREGNANCY) (TRANSPLACENTAL)
     Route: 064
  83. CALCIUM ASCORBATE [Suspect]
     Active Substance: CALCIUM ASCORBATE
     Indication: Foetal exposure during pregnancy
     Dosage: UNK (MATERNAL EXPOSURE DURING PREGNANCY) (TRANSPLACENTAL)
     Route: 064
  84. CALCIUM CITRATE [Suspect]
     Active Substance: CALCIUM CITRATE
     Indication: Foetal exposure during pregnancy
     Dosage: UNK (NOT SPECIFIED) (MATERNAL EXPOSURE DURING PREGNANCY) (TRANSPLACENTAL)
     Route: 064
  85. CALCIUM GLUBIONATE [Suspect]
     Active Substance: CALCIUM GLUBIONATE
     Indication: Foetal exposure during pregnancy
     Dosage: UNK (NOT SPECIFIED) (MATERNAL EXPOSURE DURING PREGNANCY) (TRANSPLACENTAL)
     Route: 064
  86. CELEBREX [Suspect]
     Active Substance: CELECOXIB
     Indication: Foetal exposure during pregnancy
     Dosage: UNK (MATERNAL EXPOSURE DURING PREGNANCY: 1 DOSAGE FORM, QD) (TRANSPLACENTAL)
     Route: 064
  87. CELEBREX [Suspect]
     Active Substance: CELECOXIB
     Dosage: UNK (MATERNAL EXPOSURE DURING PREGNANCY: 2 DOSAGE FORM) (TRANSPLACENTAL)
     Route: 064
  88. CELEBREX [Suspect]
     Active Substance: CELECOXIB
     Dosage: UNK (MATERNAL EXPOSURE DURING PREGNANCY: UNK, QD) (TRANSPLACENTAL)
     Route: 064
  89. CELEBREX [Suspect]
     Active Substance: CELECOXIB
     Dosage: UNK (MATERNAL EXPOSURE DURING PREGNANCY: 1 DOSAGE FORM, QD) (TRANSPLACENTAL)
     Route: 064
  90. CETIRIZINE HYDROCHLORIDE [Suspect]
     Active Substance: CETIRIZINE HYDROCHLORIDE
     Indication: Foetal exposure during pregnancy
     Dosage: UNK (MATERNAL EXPOSURE DURING PREGNANCY) (TRANSPLACENTAL)
     Route: 064
  91. CETIRIZINE HYDROCHLORIDE [Suspect]
     Active Substance: CETIRIZINE HYDROCHLORIDE
     Dosage: UNK (MATERNAL EXPOSURE DURING PREGNANCY: UNK) (TRANSPLACENTAL)
     Route: 064
  92. CETIRIZINE HYDROCHLORIDE [Suspect]
     Active Substance: CETIRIZINE HYDROCHLORIDE
     Dosage: UNK (MATERNAL EXPOSURE DURING PREGNANCY: 10 MG) (TRANSPLACENTAL)
     Route: 064
  93. CETIRIZINE HYDROCHLORIDE [Suspect]
     Active Substance: CETIRIZINE HYDROCHLORIDE
     Dosage: UNK (MATERNAL EXPOSURE DURING PREGNANCY: 25 MG) (TRANSPLACENTAL)
     Route: 065
  94. CETIRIZINE HYDROCHLORIDE [Suspect]
     Active Substance: CETIRIZINE HYDROCHLORIDE
     Dosage: UNK (MATERNAL EXPOSURE DURING PREGNANCY: 25 MG) (TRANSPLACENTAL)
     Route: 064
  95. CETIRIZINE HYDROCHLORIDE [Suspect]
     Active Substance: CETIRIZINE HYDROCHLORIDE
     Dosage: UNK (MATERNAL EXPOSURE DURING PREGNANCY: 10 MG) (TRANSPLACENTAL)
     Route: 064
  96. CHLORHEXIDINE GLUCONATE [Suspect]
     Active Substance: CHLORHEXIDINE GLUCONATE
     Indication: Foetal exposure during pregnancy
     Dosage: UNK (MATERNAL EXPOSURE DURING PREGNANCY) (TRANSPLACENTAL)
     Route: 064
  97. CIMZIA [Suspect]
     Active Substance: CERTOLIZUMAB PEGOL
     Indication: Foetal exposure during pregnancy
     Dosage: UNK (MATERNAL EXPOSURE DURING PREGNANCY) (TRANSPLACENTAL)
     Route: 064
  98. CIMZIA [Suspect]
     Active Substance: CERTOLIZUMAB PEGOL
     Dosage: UNK (MATERNAL EXPOSURE DURING PREGNANCY) (TRANSPLACENTAL)
     Route: 064
  99. CIMZIA [Suspect]
     Active Substance: CERTOLIZUMAB PEGOL
     Dosage: UNK (MATERNAL EXPOSURE DURING PREGNANCY: 400 MG) (TRANSPLACENTAL)
     Route: 064
  100. CIMZIA [Suspect]
     Active Substance: CERTOLIZUMAB PEGOL
     Dosage: UNK (MATERNAL EXPOSURE DURING PREGNANCY: 200 MG) (TRANSPLACENTAL)
     Route: 064
  101. CORTISONE ACETATE [Suspect]
     Active Substance: CORTISONE ACETATE
     Indication: Foetal exposure during pregnancy
     Dosage: UNK (MATERNAL EXPOSURE DURING PREGNANCY) (TRANSPLACENTAL)
     Route: 064
  102. CORTISONE ACETATE [Suspect]
     Active Substance: CORTISONE ACETATE
     Dosage: UNK (MATERNAL EXPOSURE DURING PREGNANCY) (TRANSPLACENTAL)
     Route: 064
  103. CORTISONE ACETATE [Suspect]
     Active Substance: CORTISONE ACETATE
     Dosage: UNK (MATERNAL EXPOSURE DURING PREGNANCY: 25 MG) (TRANSPLACENTAL)
     Route: 064
  104. CORTISONE ACETATE [Suspect]
     Active Substance: CORTISONE ACETATE
     Dosage: UNK (MATERNAL EXPOSURE DURING PREGNANCY: 25 MG) (TRANSPLACENTAL)
     Route: 064
  105. CORTISONE ACETATE [Suspect]
     Active Substance: CORTISONE ACETATE
     Dosage: UNK (MATERNAL EXPOSURE DURING PREGNANCY: 25 MG) (TRANSPLACENTAL)
     Route: 064
  106. DESOXIMETASONE [Suspect]
     Active Substance: DESOXIMETASONE
     Indication: Foetal exposure during pregnancy
     Dosage: UNK (NOT SPECIFIED) (MATERNAL EXPOSURE DURING PREGNANCY) (TRANSPLACENTAL)
     Route: 064
  107. DESOXIMETASONE [Suspect]
     Active Substance: DESOXIMETASONE
     Dosage: UNK (MATERNAL EXPOSURE DURING PREGNANCY: 25 MG) (TRANSPLACENTAL)
     Route: 064
  108. DESOXIMETASONE [Suspect]
     Active Substance: DESOXIMETASONE
     Dosage: UNK (MATERNAL EXPOSURE DURING PREGNANCY: 25 MG) (TRANSPLACENTAL)
     Route: 064
  109. DESOXIMETASONE [Suspect]
     Active Substance: DESOXIMETASONE
     Dosage: UNK (MATERNAL EXPOSURE DURING PREGNANCY: UNK) (TRANSPLACENTAL)
     Route: 064
  110. DOMPERIDONE MALEATE [Suspect]
     Active Substance: DOMPERIDONE MALEATE
     Indication: Foetal exposure during pregnancy
     Dosage: UNK (MATERNAL EXPOSURE DURING PREGNANCY) (TRANSPLACENTAL)
     Route: 064
  111. ENBREL [Suspect]
     Active Substance: ETANERCEPT
     Indication: Foetal exposure during pregnancy
     Dosage: UNK (MATERNAL EXPOSURE DURING PREGNANCY) (TRANSPLACENTAL)
     Route: 064
  112. ENBREL [Suspect]
     Active Substance: ETANERCEPT
     Dosage: UNK(MATERNAL EXPOSURE DURING PREGNANCY: 50 MG, QW) (TRANSPLACENTAL)
     Route: 064
  113. ENBREL [Suspect]
     Active Substance: ETANERCEPT
     Dosage: UNK (MATERNAL EXPOSURE DURING PREGNANCY: 10 MG QD) (TRANSPLACENTAL)
     Route: 064
  114. ENBREL [Suspect]
     Active Substance: ETANERCEPT
     Dosage: UNK (MATERNAL EXPOSURE DURING PREGNANCY: UNK) (TRANSPLACENTAL)
     Route: 064
  115. ENBREL [Suspect]
     Active Substance: ETANERCEPT
     Dosage: UNK (MATERNAL EXPOSURE DURING PREGNANCY: 40 MG) (TRANSPLACENTAL)
     Route: 064
  116. ENBREL [Suspect]
     Active Substance: ETANERCEPT
     Dosage: UNK (MATERNAL EXPOSURE DURING PREGNANCY: 50 MG QD) (TRANSPLACENTAL)
     Route: 064
  117. GOLD SODIUM THIOMALATE [Suspect]
     Active Substance: GOLD SODIUM THIOMALATE
     Indication: Foetal exposure during pregnancy
     Dosage: UNK (MATERNAL EXPOSURE DURING PREGNANCY) (TRANSPLACENTAL)
     Route: 064
  118. GOLD SODIUM THIOMALATE [Suspect]
     Active Substance: GOLD SODIUM THIOMALATE
     Dosage: UNK (MATERNAL EXPOSURE DURING PREGNANCY: UNK) (TRANSPLACENTAL)
     Route: 064
  119. GOLD SODIUM THIOMALATE [Suspect]
     Active Substance: GOLD SODIUM THIOMALATE
     Dosage: UNK (MATERNAL EXPOSURE DURING PREGNANCY: UNK) (TRANSPLACENTAL)
     Route: 064
  120. LAMICTAL [Suspect]
     Active Substance: LAMOTRIGINE
     Indication: Foetal exposure during pregnancy
     Dosage: UNK (MATERNAL EXPOSURE DURING PREGNANCY) (TRANSPLACENTAL)
     Route: 064
  121. ERGOCALCIFEROL [Suspect]
     Active Substance: ERGOCALCIFEROL
     Indication: Foetal exposure during pregnancy
     Dosage: UNK (NOT SPECIFIED)(MATERNAL EXPOSURE DURING PREGNANCY) (TRANSPLACENTAL)
     Route: 064
  122. FLUMETHASONE [Suspect]
     Active Substance: FLUMETHASONE
     Indication: Foetal exposure during pregnancy
     Dosage: UNK (MATERNAL EXPOSURE DURING PREGNANCY) (TRANSPLACENTAL)
     Route: 064
  123. FLUMETHASONE PIVALATE [Suspect]
     Active Substance: FLUMETHASONE PIVALATE
     Indication: Foetal exposure during pregnancy
     Dosage: UNK (MATERNAL EXPOSURE DURING PREGNANCY) (TRANSPLACENTAL)
     Route: 064
  124. FLUMETHASONE PIVALATE [Suspect]
     Active Substance: FLUMETHASONE PIVALATE
     Dosage: UNK (MATERNAL EXPOSURE DURING PREGNANCY) (TRANSPLACENTAL)
     Route: 064
  125. FOLIC ACID [Suspect]
     Active Substance: FOLIC ACID
     Indication: Foetal exposure during pregnancy
     Dosage: UNK (NOT SPECIFIED) (MATERNAL EXPOSURE DURING PREGNANCY) (TRANSPLACENTAL)
     Route: 064
  126. FOLIC ACID [Suspect]
     Active Substance: FOLIC ACID
     Dosage: UNK (MATERNAL EXPOSURE DURING PREGNANCY: 25 MG) (TRANSPLACENTAL)
     Route: 064
  127. FOLIC ACID [Suspect]
     Active Substance: FOLIC ACID
     Dosage: UNK (MATERNAL EXPOSURE DURING PREGNANCY: 1 MG) (TRANSPLACENTAL)
     Route: 064
  128. FOLIC ACID [Suspect]
     Active Substance: FOLIC ACID
     Dosage: UNK (MATERNAL EXPOSURE DURING PREGNANCY: 0.5 MG) (TRANSPLACENTAL)
     Route: 064
  129. FOLIC ACID [Suspect]
     Active Substance: FOLIC ACID
     Dosage: UNK (MATERNAL EXPOSURE DURING PREGNANCY: 500 MG) (TRANSPLACENTAL)
     Route: 064
  130. FOLIC ACID [Suspect]
     Active Substance: FOLIC ACID
     Dosage: UNK (MATERNAL EXPOSURE DURING PREGNANCY: UNK) (TRANSPLACENTAL)
     Route: 064
  131. FOLIC ACID [Suspect]
     Active Substance: FOLIC ACID
     Dosage: UNK (MATERNAL EXPOSURE DURING PREGNANCY: 0.5 MG) (TRANSPLACENTAL)
     Route: 064
  132. FOLIC ACID [Suspect]
     Active Substance: FOLIC ACID
     Dosage: UNK (MATERNAL EXPOSURE DURING PREGNANCY: 15 MG) (TRANSPLACENTAL)
     Route: 064
  133. FOLIC ACID [Suspect]
     Active Substance: FOLIC ACID
     Dosage: UNK (MATERNAL EXPOSURE DURING PREGNANCY: 5 MG) (TRANSPLACENTAL)
     Route: 064
  134. FOLIC ACID [Suspect]
     Active Substance: FOLIC ACID
     Dosage: UNK (MATERNAL EXPOSURE DURING PREGNANCY: 1 MG) (TRANSPLACENTAL)
     Route: 064
  135. HAIR KERATIN AMINO ACIDS GOLD COMPLEX [Suspect]
     Active Substance: HAIR KERATIN AMINO ACIDS GOLD COMPLEX
     Indication: Foetal exposure during pregnancy
     Dosage: UNK (MATERNAL EXPOSURE DURING PREGNANCY) (TRANSPLACENTAL)
     Route: 064
  136. HYDROCORTISONE [Suspect]
     Active Substance: HYDROCORTISONE
     Indication: Foetal exposure during pregnancy
     Dosage: UNK (NOT SPECIFIED) (MATERNAL EXPOSURE DURING PREGNANCY) (TRANSPLACENTAL)
     Route: 064
  137. HYDROCORTISONE PROBUTATE [Suspect]
     Active Substance: HYDROCORTISONE PROBUTATE
     Indication: Foetal exposure during pregnancy
     Dosage: UNK (MATERNAL EXPOSURE DURING PREGNANCY) (TRANSPLACENTAL)
     Route: 064
  138. HYDROXYCHLOROQUINE [Suspect]
     Active Substance: HYDROXYCHLOROQUINE
     Indication: Foetal exposure during pregnancy
     Dosage: UNK (MATERNAL EXPOSURE DURING PREGNANCY) (TRANSPLACENTAL)
     Route: 064
  139. HYDROXYCHLOROQUINE [Suspect]
     Active Substance: HYDROXYCHLOROQUINE
     Dosage: UNK (MATERNAL EXPOSURE DURING PREGNANCY: UNK) (TRANSPLACENTAL)
     Route: 064
  140. HYDROXYCHLOROQUINE [Suspect]
     Active Substance: HYDROXYCHLOROQUINE
     Dosage: UNK (MATERNAL EXPOSURE DURING PREGNANCY: UNK) (TRANSPLACENTAL)
     Route: 064
  141. HYDROXYCHLOROQUINE [Suspect]
     Active Substance: HYDROXYCHLOROQUINE
     Dosage: UNK (MATERNAL EXPOSURE DURING PREGNANCY: 400 MG QD) (TRANSPLACENTAL)
     Route: 064
  142. INFLIXIMAB [Suspect]
     Active Substance: INFLIXIMAB
     Indication: Foetal exposure during pregnancy
     Dosage: UNK (MATERNAL EXPOSURE DURING PREGNANCY) (TRANSPLACENTAL)
     Route: 064
  143. INFLIXIMAB [Suspect]
     Active Substance: INFLIXIMAB
     Dosage: UNK (NOT SPECIFIED) (MATERNAL EXPOSURE DURING PREGNANCY: 500 MG) (TRANSPLACENTAL)
     Route: 064
  144. MEGLUMINE [Suspect]
     Active Substance: MEGLUMINE
     Indication: Foetal exposure during pregnancy
     Dosage: UNK (MATERNAL EXPOSURE DURING PREGNANCY) (TRANSPLACENTAL)
     Route: 064
  145. METHOTREXATE [Suspect]
     Active Substance: METHOTREXATE
     Indication: Foetal exposure during pregnancy
     Dosage: UNK (NOT SPECIFIED) (MATERNAL EXPOSURE DURING PREGNANCY) (TRANSPLACENTAL)
     Route: 064
  146. METHOTREXATE [Suspect]
     Active Substance: METHOTREXATE
     Dosage: UNK (MATERNAL EXPOSURE DURING PREGNANCY: 15 MG QW) (TRANSPLACENTAL)
     Route: 064
  147. METHOTREXATE [Suspect]
     Active Substance: METHOTREXATE
     Dosage: UNK (MATERNAL EXPOSURE DURING PREGNANCY: 25 MG QW) (TRANSPLACENTAL)
     Route: 064
  148. METHOTREXATE [Suspect]
     Active Substance: METHOTREXATE
     Dosage: UNK (MATERNAL EXPOSURE DURING PREGNANCY: 1 MG QW) (TRANSPLACENTAL)
     Route: 064
  149. METHOTREXATE [Suspect]
     Active Substance: METHOTREXATE
     Dosage: UNK (MATERNAL EXPOSURE DURING PREGNANCY: UNK QW) (TRANSPLACENTAL)
     Route: 064
  150. METHYLPREDNISOLONE ACETATE [Suspect]
     Active Substance: METHYLPREDNISOLONE ACETATE
     Indication: Foetal exposure during pregnancy
     Dosage: UNK (MATERNAL EXPOSURE DURING PREGNANCY) (TRANSPLACENTAL)
     Route: 064
  151. METHYLPREDNISOLONE ACETATE [Suspect]
     Active Substance: METHYLPREDNISOLONE ACETATE
     Dosage: UNK (MATERNAL EXPOSURE DURING PREGNANCY: 80 MG) (TRANSPLACENTAL)
     Route: 064
  152. METHYLPREDNISOLONE SODIUM SUCCINATE [Suspect]
     Active Substance: METHYLPREDNISOLONE SODIUM SUCCINATE
     Indication: Foetal exposure during pregnancy
     Dosage: UNK (MATERNAL EXPOSURE DURING PREGNANCY) (TRANSPLACENTAL)
     Route: 064
  153. MINOCYCLINE [Suspect]
     Active Substance: MINOCYCLINE HYDROCHLORIDE
     Indication: Foetal exposure during pregnancy
     Dosage: UNK (MATERNAL EXPOSURE DURING PREGNANCY) (TRANSPLACENTAL)
     Route: 064
  154. MINOCYCLINE [Suspect]
     Active Substance: MINOCYCLINE HYDROCHLORIDE
     Dosage: UNK (MATERNAL EXPOSURE DURING PREGNANCY) (TRANSPLACENTAL)
     Route: 064
  155. MYOCHRYSINE [Suspect]
     Active Substance: GOLD SODIUM THIOMALATE
     Indication: Foetal exposure during pregnancy
     Dosage: UNK (SOLUTION INTRAMUSCULAR) (MATERNAL EXPOSURE DURING PREGNANCY) (TRANSPLACENTAL)
     Route: 064
  156. MYRBETRIQ [Suspect]
     Active Substance: MIRABEGRON
     Indication: Foetal exposure during pregnancy
     Dosage: UNK TABLET (EXTENDED- RELEASE) (MATERNAL EXPOSURE DURING PREGNANCY) (TRANSPLACENTAL)
     Route: 064
  157. NAPROXEN [Suspect]
     Active Substance: NAPROXEN
     Indication: Foetal exposure during pregnancy
     Dosage: UNK (TABLET (ENTERIC- COATED)) (MATERNAL EXPOSURE DURING PREGNANCY) (TRANSPLACENTAL)
     Route: 064
  158. NAPROXEN [Suspect]
     Active Substance: NAPROXEN
     Dosage: UNK (MATERNAL EXPOSURE DURING PREGNANCY: UNK) (TRANSPLACENTAL)
     Route: 064
  159. NAPROXEN SODIUM [Suspect]
     Active Substance: NAPROXEN SODIUM
     Indication: Foetal exposure during pregnancy
     Dosage: UNK (MATERNAL EXPOSURE DURING PREGNANCY) (TRANSPLACENTAL)
     Route: 064
  160. NAPROXEN SODIUM [Suspect]
     Active Substance: NAPROXEN SODIUM
     Dosage: UNK (MATERNAL EXPOSURE DURING PREGNANCY: 500 MG) (TRANSPLACENTAL)
     Route: 064
  161. NICOTINAMIDE [Suspect]
     Active Substance: NIACINAMIDE
     Indication: Foetal exposure during pregnancy
     Dosage: UNK (MATERNAL EXPOSURE DURING PREGNANCY) (TRANSPLACENTAL)
     Route: 064
  162. NICOTINAMIDE [Suspect]
     Active Substance: NIACINAMIDE
     Dosage: UNK (MATERNAL EXPOSURE DURING PREGNANCY: 1 DOSAGE FORM) (TRANSPLACENTAL)
     Route: 064
  163. NUCALA [Suspect]
     Active Substance: MEPOLIZUMAB
     Indication: Foetal exposure during pregnancy
     Dosage: UNK (MATERNAL EXPOSURE DURING PREGNANCY) (TRANSPLACENTAL)
     Route: 064
  164. ORENCIA [Suspect]
     Active Substance: ABATACEPT
     Indication: Foetal exposure during pregnancy
     Dosage: UNK (MATERNAL EXPOSURE DURING PREGNANCY: 365 DOSAGE FORM) (TRANSPLACENTAL)
     Route: 064
  165. PHENYLEPHRINE HYDROCHLORIDE [Suspect]
     Active Substance: PHENYLEPHRINE HYDROCHLORIDE
     Indication: Foetal exposure during pregnancy
     Dosage: UNK (MATERNAL EXPOSURE DURING PREGNANCY) (TRANSPLACENTAL)
     Route: 064
  166. PHENYLEPHRINE HYDROCHLORIDE [Suspect]
     Active Substance: PHENYLEPHRINE HYDROCHLORIDE
     Dosage: UNK (INJECTION USP, LIQUID, MATERNAL EXPOSURE DURING PREGNANCY) (TRANSPLACENTAL)
     Route: 064
  167. OXYCODONE TEREPHTHALATE [Suspect]
     Active Substance: OXYCODONE TEREPHTHALATE
     Indication: Foetal exposure during pregnancy
     Dosage: UNK (MATERNAL EXPOSURE DURING PREGNANCY) (TRANSPLACENTAL)
     Route: 064
  168. PERIOGARD [Suspect]
     Active Substance: CHLORHEXIDINE GLUCONATE
     Indication: Foetal exposure during pregnancy
     Dosage: UNK (MATERNAL EXPOSURE DURING PREGNANCY) (TRANSPLACENTAL)
     Route: 064
  169. PERIOGARD [Suspect]
     Active Substance: CHLORHEXIDINE GLUCONATE
     Dosage: UNK (MATERNAL EXPOSURE DURING PREGNANCY: UNK) (TRANSPLACENTAL)
     Route: 064
  170. PHENYLEPHRINE HYDROCHLORIDE\TROPICAMIDE [Suspect]
     Active Substance: PHENYLEPHRINE HYDROCHLORIDE\TROPICAMIDE
     Indication: Foetal exposure during pregnancy
     Dosage: UNK(MATERNAL EXPOSURE DURING PREGNANCY) (TRANSPLACENTAL)
     Route: 064
  171. PHTHALYLSULFATHIAZOLE [Suspect]
     Active Substance: PHTHALYLSULFATHIAZOLE
     Indication: Foetal exposure during pregnancy
     Dosage: UNK (MATERNAL EXPOSURE DURING PREGNANCY) (TRANSPLACENTAL)
     Route: 064
  172. PREDNISONE [Suspect]
     Active Substance: PREDNISONE
     Indication: Foetal exposure during pregnancy
     Dosage: UNK (MATERNAL EXPOSURE DURING PREGNANCY) (TRANSPLACENTAL)
     Route: 064
  173. PREDNISONE [Suspect]
     Active Substance: PREDNISONE
     Dosage: UNK (MATERNAL EXPOSURE DURING PREGNANCY: 50 MG QD) (TRANSPLACENTAL)
     Route: 064
  174. PSEUDOEPHEDRINE HYDROCHLORIDE [Suspect]
     Active Substance: PSEUDOEPHEDRINE HYDROCHLORIDE
     Indication: Foetal exposure during pregnancy
     Dosage: UNK (MATERNAL EXPOSURE DURING PREGNANCY) (TRANSPLACENTAL)
     Route: 064
  175. RAMIPRIL [Suspect]
     Active Substance: RAMIPRIL
     Indication: Foetal exposure during pregnancy
     Dosage: UNK (MATERNAL EXPOSURE DURING PREGNANCY) (TRANSPLACENTAL)
     Route: 064
  176. CETIRIZINE HYDROCHLORIDE\PSEUDOEPHEDRINE HYDROCHLORIDE [Suspect]
     Active Substance: CETIRIZINE HYDROCHLORIDE\PSEUDOEPHEDRINE HYDROCHLORIDE
     Indication: Foetal exposure during pregnancy
     Dosage: UNK TABLET (EXTENDED- RELEASE) (MATERNAL EXPOSURE DURING PREGNANCY) (TRANSPLACENTAL)
     Route: 064
  177. CETIRIZINE HYDROCHLORIDE\PSEUDOEPHEDRINE HYDROCHLORIDE [Suspect]
     Active Substance: CETIRIZINE HYDROCHLORIDE\PSEUDOEPHEDRINE HYDROCHLORIDE
     Dosage: UNK (MATERNAL EXPOSURE DURING PREGNANCY: 10 MG) (TRANSPLACENTAL)
     Route: 064
  178. CETIRIZINE HYDROCHLORIDE\PSEUDOEPHEDRINE HYDROCHLORIDE [Suspect]
     Active Substance: CETIRIZINE HYDROCHLORIDE\PSEUDOEPHEDRINE HYDROCHLORIDE
     Dosage: UNK (MATERNAL EXPOSURE DURING PREGNANCY: 25 MG) (TRANSPLACENTAL)
     Route: 064
  179. CETIRIZINE HYDROCHLORIDE\PSEUDOEPHEDRINE HYDROCHLORIDE [Suspect]
     Active Substance: CETIRIZINE HYDROCHLORIDE\PSEUDOEPHEDRINE HYDROCHLORIDE
     Dosage: UNK (MATERNAL EXPOSURE DURING PREGNANCY: UNK) (TRANSPLACENTAL)
     Route: 064
  180. RITUXAN [Suspect]
     Active Substance: RITUXIMAB
     Indication: Foetal exposure during pregnancy
     Dosage: UNK (MATERNAL EXPOSURE DURING PREGNANCY) (TRANSPLACENTAL)
     Route: 064
  181. RITUXAN [Suspect]
     Active Substance: RITUXIMAB
     Dosage: UNK (MATERNAL EXPOSURE DURING PREGNANCY) (TRANSPLACENTAL)
     Route: 064
  182. RITUXAN [Suspect]
     Active Substance: RITUXIMAB
     Dosage: UNK (MATERNAL EXPOSURE DURING PREGNANCY) (TRANSPLACENTAL)
     Route: 064
  183. RITUXAN [Suspect]
     Active Substance: RITUXIMAB
     Dosage: UNK (MATERNAL EXPOSURE DURING PREGNANCY) (TRANSPLACENTAL)
     Route: 064
  184. RITUXAN [Suspect]
     Active Substance: RITUXIMAB
     Dosage: UNK (MATERNAL EXPOSURE DURING PREGNANCY: 1000 MG BID) (TRANSPLACENTAL)
     Route: 064
  185. RITUXAN [Suspect]
     Active Substance: RITUXIMAB
     Dosage: UNK (MATERNAL EXPOSURE DURING PREGNANCY: 2000 MG QD) (TRANSPLACENTAL)
     Route: 065
  186. RITUXAN [Suspect]
     Active Substance: RITUXIMAB
     Dosage: UNK (MATERNAL EXPOSURE DURING PREGNANCY: 365 MG) (TRANSPLACENTAL)
     Route: 065
  187. SIMPONI [Suspect]
     Active Substance: GOLIMUMAB
     Indication: Foetal exposure during pregnancy
     Dosage: UNK SOLUTION SUBCUTANEOUS (MATERNAL EXPOSURE DURING PREGNANCY) (TRANSPLACENTAL)
     Route: 064
  188. SIMPONI [Suspect]
     Active Substance: GOLIMUMAB
     Dosage: UNK (MATERNAL EXPOSURE DURING PREGNANCY: 50 MG) (TRANSPLACENTAL)
     Route: 064
  189. SIMPONI [Suspect]
     Active Substance: GOLIMUMAB
     Dosage: UNK (MATERNAL EXPOSURE DURING PREGNANCY: UNK) (TRANSPLACENTAL)
     Route: 064
  190. STELARA [Suspect]
     Active Substance: USTEKINUMAB
     Indication: Foetal exposure during pregnancy
     Dosage: UNK SOLUTION SUBCUTANEOUS (MATERNAL EXPOSURE DURING PREGNANCY) (TRANSPLACENTAL)
     Route: 064
  191. STELARA [Suspect]
     Active Substance: USTEKINUMAB
     Dosage: UNK (MATERNAL EXPOSURE DURING PREGNANCY: UNK) (TRANSPLACENTAL)
     Route: 064
  192. STELARA [Suspect]
     Active Substance: USTEKINUMAB
     Dosage: UNK (MATERNAL EXPOSURE DURING PREGNANCY: 40 MG) (TRANSPLACENTAL)
     Route: 064
  193. SULFASALAZINE [Suspect]
     Active Substance: SULFASALAZINE
     Indication: Foetal exposure during pregnancy
     Dosage: UNK (MATERNAL EXPOSURE DURING PREGNANCY) (TRANSPLACENTAL)
     Route: 064
  194. SULFASALAZINE [Suspect]
     Active Substance: SULFASALAZINE
     Dosage: UNK (MATERNAL EXPOSURE DURING PREGNANCY: 1000 MG) (TRANSPLACENTAL)
     Route: 064
  195. SULFASALAZINE [Suspect]
     Active Substance: SULFASALAZINE
     Dosage: UNK (MATERNAL EXPOSURE DURING PREGNANCY: 1 G QD) (TRANSPLACENTAL)
     Route: 064
  196. SULFASALAZINE [Suspect]
     Active Substance: SULFASALAZINE
     Dosage: UNK (MATERNAL EXPOSURE DURING PREGNANCY: 100 MG) (TRANSPLACENTAL)
     Route: 064
  197. SULFASALAZINE [Suspect]
     Active Substance: SULFASALAZINE
     Dosage: UNK (MATERNAL EXPOSURE DURING PREGNANCY: 1 G QD) (TRANSPLACENTAL)
     Route: 064
  198. SULFASALAZINE [Suspect]
     Active Substance: SULFASALAZINE
     Dosage: UNK (MATERNAL EXPOSURE DURING PREGNANCY: 1 DOSAGE FORM) (TRANSPLACENTAL)
     Route: 064
  199. SULFASALAZINE [Suspect]
     Active Substance: SULFASALAZINE
     Dosage: UNK (MATERNAL EXPOSURE DURING PREGNANCY: 500 MG) (TRANSPLACENTAL)
     Route: 064
  200. SULFASALAZINE [Suspect]
     Active Substance: SULFASALAZINE
     Dosage: UNK (MATERNAL EXPOSURE DURING PREGNANCY: 2 MG QD) (TRANSPLACENTAL)
     Route: 064
  201. TOPIRAMATE [Suspect]
     Active Substance: TOPIRAMATE
     Indication: Foetal exposure during pregnancy
     Dosage: UNK (MATERNAL EXPOSURE DURING PREGNANCY) (TRANSPLACENTAL)
     Route: 064
  202. VITAMIN C [Suspect]
     Active Substance: ASCORBIC ACID
     Indication: Foetal exposure during pregnancy
     Dosage: UNK (MATERNAL EXPOSURE DURING PREGNANCY) (TRANSPLACENTAL)
     Route: 064
  203. VITAMIN C [Suspect]
     Active Substance: ASCORBIC ACID
     Dosage: UNK (MATERNAL EXPOSURE DURING PREGNANCY: 1000 MG) (TRANSPLACENTAL)
     Route: 064
  204. XELJANZ [Suspect]
     Active Substance: TOFACITINIB CITRATE
     Indication: Foetal exposure during pregnancy
     Dosage: UNK (MATERNAL EXPOSURE DURING PREGNANCY) (TRANSPLACENTAL)
     Route: 064
  205. XELJANZ [Suspect]
     Active Substance: TOFACITINIB CITRATE
     Dosage: UNK (MATERNAL EXPOSURE DURING PREGNANCY: 10 MG QD) (TRANSPLACENTAL)
     Route: 064
  206. XELJANZ [Suspect]
     Active Substance: TOFACITINIB CITRATE
     Dosage: UNK (MATERNAL EXPOSURE DURING PREGNANCY: 20 MG QD) (TRANSPLACENTAL)
     Route: 064
  207. ZINC [Suspect]
     Active Substance: ZINC
     Indication: Foetal exposure during pregnancy
     Dosage: UNK (MATERNAL EXPOSURE DURING PREGNANCY) (TRANSPLACENTAL)
     Route: 064
  208. ACETAMINOPHEN [Suspect]
     Active Substance: ACETAMINOPHEN
     Indication: Foetal exposure during pregnancy
     Dosage: UNK (MATERNAL EXPOSURE DURING PREGNANCY) (TRANSPLACENTAL)
     Route: 064
  209. ACETAMINOPHEN [Suspect]
     Active Substance: ACETAMINOPHEN
     Dosage: UNK (MATERNAL EXPOSURE DURING PREGNANCY) (TRANSPLACENTAL)
     Route: 064
  210. TRUXIMA [Suspect]
     Active Substance: RITUXIMAB-ABBS
     Indication: Foetal exposure during pregnancy
     Dosage: UNK (SINGLE-DOSEUNK (SINGLE-DOSE VIAL) (CONCENTRATE FOR SOLUTION FOR INFUSION) (MATERNAL EXPOSURE DU
     Route: 064
  211. TRUXIMA [Suspect]
     Active Substance: RITUXIMAB-ABBS
     Dosage: UNK (SINGLE-DOSE VIAL) (CONCENTRATE FOR SOLUTION FOR INFUSION) (MATERNAL EXPOSURE DURING PREGNANCY)
     Route: 064
  212. TRUXIMA [Suspect]
     Active Substance: RITUXIMAB-ABBS
     Dosage: UNK (SINGLE-DOSE VIAL) (CONCENTRATE FOR SOLUTION FOR INFUSION) (MATERNAL EXPOSURE DURING PREGNANCY)
     Route: 064
  213. TRUXIMA [Suspect]
     Active Substance: RITUXIMAB-ABBS
     Dosage: UNK (SINGLE-DOSE VIAL) (CONCENTRATE FOR SOLUTION FOR INFUSION) (MATERNAL EXPOSURE DURING PREGNANCY)
     Route: 064
  214. TRUXIMA [Suspect]
     Active Substance: RITUXIMAB-ABBS
     Dosage: UNK (SINGLE-DOSE VIAL) (CONCENTRATE FOR SOLUTION FOR INFUSION) (MATERNAL EXPOSURE DURING PREGNANCY)
     Route: 064
  215. TRUXIMA [Suspect]
     Active Substance: RITUXIMAB-ABBS
     Dosage: UNK (SINGLE-DOSE VIAL) (CONCENTRATE FOR SOLUTION FOR INFUSION) (MATERNAL EXPOSURE DURING PREGNANCY)
     Route: 064
  216. TRUXIMA [Suspect]
     Active Substance: RITUXIMAB-ABBS
     Dosage: UNK (SINGLE-DOSE VIAL) (CONCENTRATE FOR SOLUTION FOR INFUSION) (MATERNAL EXPOSURE DURING PREGNANCY)
     Route: 064
  217. ACETAMINOPHEN\TRAMADOL HYDROCHLORIDE [Suspect]
     Active Substance: ACETAMINOPHEN\TRAMADOL HYDROCHLORIDE
     Indication: Foetal exposure during pregnancy
     Dosage: UNK (MATERNAL EXPOSURE DURING PREGNANCY: UNK) (TRANSPLACENTAL)
     Route: 064
  218. ALENDRONATE SODIUM\CHOLECALCIFEROL [Suspect]
     Active Substance: ALENDRONATE SODIUM\CHOLECALCIFEROL
     Indication: Foetal exposure during pregnancy
     Dosage: UNK (MATERNAL EXPOSURE DURING PREGNANCY: UNK) (TRANSPLACENTAL)
     Route: 064
  219. CORTISONE [Suspect]
     Active Substance: CORTISONE
     Indication: Foetal exposure during pregnancy
     Dosage: UNK (MATERNAL EXPOSURE DURING PREGNANCY: UNK) (TRANSPLACENTAL)
     Route: 064
  220. FLUMETHASONE\SALICYLIC ACID [Suspect]
     Active Substance: FLUMETHASONE\SALICYLIC ACID
     Indication: Foetal exposure during pregnancy
     Dosage: UNK (MATERNAL EXPOSURE DURING PREGNANCY: UNK) (TRANSPLACENTAL)
     Route: 064
  221. TOPAMAX [Suspect]
     Active Substance: TOPIRAMATE
     Indication: Foetal exposure during pregnancy
     Dosage: UNK (MATERNAL EXPOSURE DURING PREGNANCY: 25 MG QD) (TRANSPLACENTAL)
     Route: 064
  222. TOPAMAX [Suspect]
     Active Substance: TOPIRAMATE
     Dosage: UNK (MATERNAL EXPOSURE DURING PREGNANCY: 25 MG) (TRANSPLACENTAL)
     Route: 064
  223. TOPAMAX [Suspect]
     Active Substance: TOPIRAMATE
     Dosage: UNK (MATERNAL EXPOSURE DURING PREGNANCY: 3 MG) (TRANSPLACENTAL)
     Route: 064
  224. REMICADE [Suspect]
     Active Substance: INFLIXIMAB
     Indication: Foetal exposure during pregnancy
     Dosage: UNK (MATERNAL EXPOSURE DURING PREGNANCY: UNK) (TRANSPLACENTAL)
     Route: 064
  225. REMICADE [Suspect]
     Active Substance: INFLIXIMAB
     Dosage: UNK (MATERNAL EXPOSURE DURING PREGNANCY: 400 MG) (TRANSPLACENTAL)
     Route: 064
  226. REMICADE [Suspect]
     Active Substance: INFLIXIMAB
     Dosage: UNK (MATERNAL EXPOSURE DURING PREGNANCY: 500 MG) (TRANSPLACENTAL)
     Route: 064
  227. REMICADE [Suspect]
     Active Substance: INFLIXIMAB
     Dosage: UNK (MATERNAL EXPOSURE DURING PREGNANCY: 300 MG) (TRANSPLACENTAL)
     Route: 064
  228. ATOMOXETINE [Suspect]
     Active Substance: ATOMOXETINE
     Indication: Foetal exposure during pregnancy
     Dosage: (MATERNAL EXPOSURE DURING PREGNANCY: UNK) (TRANSPLACENTAL)
     Route: 064
  229. AZATHIOPRINE [Suspect]
     Active Substance: AZATHIOPRINE
     Indication: Foetal exposure during pregnancy
     Dosage: UNK (MATERNAL EXPOSURE DURING PREGNANCY: UNK) (TRANSPLACENTAL)
     Route: 064
  230. AZATHIOPRINE [Suspect]
     Active Substance: AZATHIOPRINE
     Dosage: UNK (MATERNAL EXPOSURE DURING PREGNANCY: UNK) (TRANSPLACENTAL)
     Route: 064
  231. CETIRIZINE [Suspect]
     Active Substance: CETIRIZINE HYDROCHLORIDE
     Indication: Foetal exposure during pregnancy
     Dosage: UNK (MATERNAL EXPOSURE DURING PREGNANCY: UNK) (TRANSPLACENTAL)
     Route: 064
  232. METHYLPREDNISOLONE [Suspect]
     Active Substance: METHYLPREDNISOLONE
     Indication: Foetal exposure during pregnancy
     Dosage: UNK (MATERNAL EXPOSURE DURING PREGNANCY: UNK) (TRANSPLACENTAL)
     Route: 064
  233. NAPROXEN [Suspect]
     Active Substance: NAPROXEN
     Indication: Foetal exposure during pregnancy
     Dosage: UNK (ENTERIC-COATED) (MATERNAL EXPOSURE DURING PREGNANCY: UNK) (TRANSPLACENTAL))
     Route: 064
  234. PSEUDOEPHEDRINE [Suspect]
     Active Substance: PSEUDOEPHEDRINE
     Indication: Foetal exposure during pregnancy
     Dosage: UNK (MATERNAL EXPOSURE DURING PREGNANCY: UNK) (TRANSPLACENTAL)
     Route: 064
  235. ZINC [Suspect]
     Active Substance: ZINC
     Indication: Foetal exposure during pregnancy
     Dosage: 10 MG
     Route: 064
  236. CHLORHEXIDINE GLUCONATE\ISOPROPYL ALCOHOL [Suspect]
     Active Substance: CHLORHEXIDINE GLUCONATE\ISOPROPYL ALCOHOL
     Indication: Foetal exposure during pregnancy
     Dosage: UNK
     Route: 064
  237. FLUMETHASONE PIVALATE [Suspect]
     Active Substance: FLUMETHASONE PIVALATE
     Indication: Foetal exposure during pregnancy
     Dosage: UNK
     Route: 064

REACTIONS (2)
  - Congenital anomaly [Unknown]
  - Foetal exposure during pregnancy [Unknown]
